FAERS Safety Report 22604287 (Version 1)
Quarter: 2023Q2

REPORT INFORMATION
  Report Type: Spontaneous
  Country: KR (occurrence: KR)
  Receive Date: 20230615
  Receipt Date: 20230615
  Transmission Date: 20230722
  Serious: Yes (Other)
  Sender: FDA-Public Use
  Company Number: KR-STRIDES ARCOLAB LIMITED-2023SP009492

PATIENT
  Age: 8 Month
  Sex: Female

DRUGS (9)
  1. PREDNISOLONE [Suspect]
     Active Substance: PREDNISOLONE
     Indication: Infantile spasms
     Dosage: 40 MILLIGRAM (PER DAY) (ON DAYS 14-20)
     Route: 048
  2. PREDNISOLONE [Suspect]
     Active Substance: PREDNISOLONE
     Dosage: 60 MILLIGRAM (PER DAY) (ON DAYS 21-27)
     Route: 048
  3. PREDNISOLONE [Suspect]
     Active Substance: PREDNISOLONE
     Dosage: UNK (TAPERED OFF)
     Route: 065
  4. VIGABATRIN [Concomitant]
     Active Substance: VIGABATRIN
     Indication: Infantile spasms
     Dosage: 50 MILLIGRAM/KILOGRAM (DAY 1)
     Route: 065
  5. VIGABATRIN [Concomitant]
     Active Substance: VIGABATRIN
     Dosage: 100 MILLIGRAM/KILOGRAM (ON DAYS 2-4)
     Route: 065
  6. VIGABATRIN [Concomitant]
     Active Substance: VIGABATRIN
     Dosage: 150 MILLIGRAM/KILOGRAM (ON DAYS 5-13)
     Route: 065
  7. VIGABATRIN [Concomitant]
     Active Substance: VIGABATRIN
     Dosage: 150 MILLIGRAM/KILOGRAM (ON DAYS 14-20)
     Route: 065
  8. VIGABATRIN [Concomitant]
     Active Substance: VIGABATRIN
     Dosage: 150 MILLIGRAM/KILOGRAM (ON DAYS 21-27)
     Route: 065
  9. VIGABATRIN [Concomitant]
     Active Substance: VIGABATRIN
     Dosage: UNK (CONTINUED)
     Route: 065

REACTIONS (2)
  - Hyperkinesia [Recovered/Resolved]
  - Somnolence [Unknown]
